FAERS Safety Report 5573571-X (Version None)
Quarter: 2007Q4

REPORT INFORMATION
  Report Type: 
  Country: None (occurrence: None)
  Receive Date: 20071220
  Receipt Date: 20071212
  Transmission Date: 20080405
  Serious: Yes (Other)
  Sender: FDA-Public Use
  Company Number: 2007337651

PATIENT
  Age: 37 Year
  Sex: Female
  Weight: 81.6475 kg

DRUGS (1)
  1. ROLAIDS [Suspect]
     Indication: DYSPEPSIA
     Dosage: ONE ONCE, ORAL
     Route: 048
     Dates: start: 20071201, end: 20071201

REACTIONS (2)
  - PHARMACEUTICAL PRODUCT COMPLAINT [None]
  - PHARYNGOLARYNGEAL PAIN [None]
